FAERS Safety Report 5937973-1 (Version None)
Quarter: 2008Q4

REPORT INFORMATION
  Report Type: 
  Country: None (occurrence: None)
  Receive Date: 20081031
  Receipt Date: 20081021
  Transmission Date: 20090506
  Serious: Yes (Other)
  Sender: FDA-Public Use
  Company Number: US-PFIZER INC-2008069768

PATIENT
  Sex: Female
  Weight: 61.2 kg

DRUGS (11)
  1. LYRICA [Suspect]
     Indication: FIBROMYALGIA
     Route: 048
     Dates: start: 20080421, end: 20080625
  2. XANAX [Suspect]
     Indication: PAIN
     Route: 048
     Dates: start: 20080401
  3. ELAVIL [Suspect]
     Indication: PAIN
     Route: 048
     Dates: start: 20080401
  4. LORTAB [Suspect]
     Indication: PAIN
     Route: 048
     Dates: start: 20080401
  5. SOMA [Suspect]
     Dates: start: 20080401
  6. PROZAC [Concomitant]
     Dates: start: 20080501
  7. ORTHO TRI-CYCLEN [Concomitant]
     Indication: CONTRACEPTION
  8. VITAMIN B-12 [Concomitant]
  9. COENZYME Q10 [Concomitant]
  10. IBUPROFEN TABLETS [Concomitant]
  11. VICODIN [Concomitant]
     Dates: start: 20080301

REACTIONS (6)
  - ACCIDENT [None]
  - C-REACTIVE PROTEIN INCREASED [None]
  - CONFUSIONAL STATE [None]
  - INTERVERTEBRAL DISC PROTRUSION [None]
  - PNEUMONIA [None]
  - SOMNOLENCE [None]
